FAERS Safety Report 10008970 (Version 1)
Quarter: 2014Q1

REPORT INFORMATION
  Report Type: Spontaneous
  Country: US (occurrence: US)
  Receive Date: 20140313
  Receipt Date: 20140313
  Transmission Date: 20141002
  Serious: Yes (Other)
  Sender: FDA-Public Use
  Company Number: US-INCYTE CORPORATION-2012IN001225

PATIENT
  Sex: Male

DRUGS (3)
  1. JAKAFI [Suspect]
     Dosage: 20 MG, BID
     Route: 048
  2. JAKAFI [Suspect]
     Dosage: 20 MG, QD
     Route: 048
  3. JAKAFI [Suspect]
     Dosage: 10 MG, QD
     Dates: start: 2012

REACTIONS (1)
  - Anaemia [Recovered/Resolved]
